FAERS Safety Report 20093226 (Version 1)
Quarter: 2021Q4

REPORT INFORMATION
  Report Type: Spontaneous
  Country: CA (occurrence: CA)
  Receive Date: 20211120
  Receipt Date: 20211120
  Transmission Date: 20220303
  Serious: Yes (Hospitalization, Other)
  Sender: FDA-Public Use
  Company Number: CA-SAMSUNG BIOEPIS-SB-2021-26881

PATIENT
  Age: 70 Year
  Sex: Male
  Weight: 125 kg

DRUGS (1)
  1. INFLIXIMAB [Suspect]
     Active Substance: INFLIXIMAB
     Indication: Crohn^s disease
     Route: 042

REACTIONS (12)
  - Anaemia [Unknown]
  - Blood pressure increased [Unknown]
  - Cellulitis [Unknown]
  - Condition aggravated [Unknown]
  - Oedema [Unknown]
  - Poor venous access [Unknown]
  - Rash [Unknown]
  - Weight increased [Unknown]
  - Drug level below therapeutic [Unknown]
  - Therapeutic product effect incomplete [Unknown]
  - Inappropriate schedule of product administration [Unknown]
  - Off label use [Unknown]
